FAERS Safety Report 10313614 (Version 1)
Quarter: 2014Q3

REPORT INFORMATION
  Report Type: Spontaneous
  Country: US (occurrence: None)
  Receive Date: 20140716
  Receipt Date: 20140716
  Transmission Date: 20150326
  Serious: Yes (Hospitalization)
  Sender: FDA-Public Use
  Company Number: 2431786

PATIENT
  Age: 69 Year
  Sex: Female
  Weight: 61.81 kg

DRUGS (1)
  1. SODIUM CHLORIDE 0.9% INJECTION, USP (SODIUM CHLORIDE) [Suspect]
     Active Substance: SODIUM CHLORIDE
     Indication: DEHYDRATION
     Dosage: 1000 ML MILLILITRE(S), INTRAVENOUS
     Route: 041
     Dates: start: 20140701, end: 20140701

REACTIONS (4)
  - Dyspnoea [None]
  - Drug hypersensitivity [None]
  - Throat tightness [None]
  - Chest discomfort [None]

NARRATIVE: CASE EVENT DATE: 20140701
